FAERS Safety Report 16662173 (Version 2)
Quarter: 2020Q1

REPORT INFORMATION
  Report Type: Report from Study
  Country: US (occurrence: US)
  Receive Date: 20190802
  Receipt Date: 20200129
  Transmission Date: 20200409
  Serious: No
  Sender: FDA-Public Use
  Company Number: US-EXELIXIS-CABO-19019092

PATIENT
  Age: 78 Year
  Sex: Male
  Weight: 99.77 kg

DRUGS (18)
  1. CABOMETYX [Suspect]
     Active Substance: CABOZANTINIB S-MALATE
     Dosage: 40 MG, QD
     Route: 048
     Dates: start: 20190517
  2. MORPHINE [Concomitant]
     Active Substance: MORPHINE
  3. NOVOLOG [Concomitant]
     Active Substance: INSULIN ASPART
  4. OMEPRAZOLE. [Concomitant]
     Active Substance: OMEPRAZOLE
  5. PROLIA [Concomitant]
     Active Substance: DENOSUMAB
  6. CALCITRIOL. [Concomitant]
     Active Substance: CALCITRIOL
  7. ALLOPURINOL. [Concomitant]
     Active Substance: ALLOPURINOL
  8. SIMVASTATIN. [Concomitant]
     Active Substance: SIMVASTATIN
  9. BASAFLAR KWIKPEN [Concomitant]
  10. TYLENOL [Concomitant]
     Active Substance: ACETAMINOPHEN
  11. CABOMETYX [Suspect]
     Active Substance: CABOZANTINIB S-MALATE
     Indication: RENAL CANCER
     Dosage: 60 MG, QD
     Route: 048
     Dates: start: 20181011
  12. CABOMETYX [Suspect]
     Active Substance: CABOZANTINIB S-MALATE
     Dosage: 40 MG, QD
     Route: 048
     Dates: end: 2019
  13. BACLOFEN. [Concomitant]
     Active Substance: BACLOFEN
  14. LEVOTHYROXINE SODIUM. [Concomitant]
     Active Substance: LEVOTHYROXINE SODIUM
  15. FENTANYL. [Concomitant]
     Active Substance: FENTANYL
  16. OXYCODONE HYDROCHLORIDE. [Concomitant]
     Active Substance: OXYCODONE HYDROCHLORIDE
  17. ALBUTEROL. [Concomitant]
     Active Substance: ALBUTEROL
  18. LISINOPRIL. [Concomitant]
     Active Substance: LISINOPRIL

REACTIONS (6)
  - Confusional state [Unknown]
  - Frustration tolerance decreased [Unknown]
  - Nausea [Unknown]
  - Diarrhoea [Unknown]
  - Toxicity to various agents [Unknown]
  - Vomiting [Unknown]

NARRATIVE: CASE EVENT DATE: 201902
